FAERS Safety Report 9651561 (Version 1)
Quarter: 2013Q4

REPORT INFORMATION
  Report Type: Spontaneous
  Country: US (occurrence: US)
  Receive Date: 20131029
  Receipt Date: 20131029
  Transmission Date: 20140711
  Serious: No
  Sender: FDA-Public Use
  Company Number: US-BIOGENIDEC-2013BI072723

PATIENT
  Age: 65 Year
  Sex: Female

DRUGS (4)
  1. TECFIDERA [Suspect]
     Indication: MULTIPLE SCLEROSIS
     Route: 048
     Dates: start: 201306
  2. ACIDOPHILUS [Concomitant]
  3. CITRACAL-VITAMIN D (PRESUMED TO BE CALCIUM CITRAATE-VIT D) [Concomitant]
  4. PECTIN [Concomitant]

REACTIONS (5)
  - Abdominal pain upper [Not Recovered/Not Resolved]
  - Dyspepsia [Unknown]
  - Flushing [Recovered/Resolved]
  - Rash erythematous [Recovered/Resolved]
  - Abdominal pain [Unknown]
